FAERS Safety Report 7231806-1 (Version None)
Quarter: 2011Q1

REPORT INFORMATION
  Report Type: 
  Country: None (occurrence: None)
  Receive Date: 20110118
  Receipt Date: 20110114
  Transmission Date: 20110831
  Serious: Yes (Hospitalization, Other)
  Sender: FDA-Public Use
  Company Number: CA-ABBOTT-10P-028-0688965-00

PATIENT
  Sex: Female

DRUGS (11)
  1. AMYTRIPTILLINE [Concomitant]
     Indication: PRODUCT USED FOR UNKNOWN INDICATION
     Dosage: AT HOUR OF SLEEP
     Route: 048
  2. DILAUDID [Concomitant]
     Indication: PAIN
     Dosage: 2 IN 1 D AND EVERY 4 HOURS AS NEEDED
     Route: 048
  3. PREDNISONE [Concomitant]
     Indication: PRODUCT USED FOR UNKNOWN INDICATION
     Route: 048
  4. HUMIRA [Suspect]
     Indication: CROHN'S DISEASE
     Dosage: 80 MG AT WEEK 2
     Route: 058
     Dates: start: 20101104
  5. TECTA [Concomitant]
     Indication: PRODUCT USED FOR UNKNOWN INDICATION
     Route: 048
  6. TPN ELECTROLYTES IN PLASTIC CONTAINER [Concomitant]
     Indication: PRODUCT USED FOR UNKNOWN INDICATION
     Route: 042
  7. TYLENOL [Suspect]
     Indication: PRODUCT USED FOR UNKNOWN INDICATION
     Dosage: 500 MG X 2 TABLETS
  8. ELMIRON [Concomitant]
     Indication: PRODUCT USED FOR UNKNOWN INDICATION
     Route: 048
  9. ELTROXIN [Concomitant]
     Indication: THYROID DISORDER
     Route: 048
  10. LASIX [Concomitant]
     Indication: PRODUCT USED FOR UNKNOWN INDICATION
     Route: 048
  11. LIPIDS NOS [Concomitant]
     Indication: PRODUCT USED FOR UNKNOWN INDICATION
     Route: 042

REACTIONS (10)
  - WHITE BLOOD CELL COUNT DECREASED [None]
  - MUSCLE SPASMS [None]
  - CROHN'S DISEASE [None]
  - RHINITIS [None]
  - HYPERHIDROSIS [None]
  - COLONOSCOPY ABNORMAL [None]
  - PYREXIA [None]
  - PRODUCTIVE COUGH [None]
  - FATIGUE [None]
  - DRUG INEFFECTIVE [None]
